FAERS Safety Report 9934589 (Version 2)
Quarter: 2014Q2

REPORT INFORMATION
  Report Type: Spontaneous
  Country: FR (occurrence: FR)
  Receive Date: 20140228
  Receipt Date: 20140418
  Transmission Date: 20141212
  Serious: Yes (Other)
  Sender: FDA-Public Use
  Company Number: FR-UCBSA-113191

PATIENT
  Age: 64 Year
  Sex: Male
  Weight: 70 kg

DRUGS (10)
  1. KEPPRA [Suspect]
     Indication: CONVULSION PROPHYLAXIS
     Route: 048
     Dates: start: 20131223
  2. KEPPRA [Suspect]
     Indication: CONVULSION PROPHYLAXIS
     Dosage: CUTING THE TABLETS IN HALF
     Route: 048
  3. TADENAN [Concomitant]
     Indication: PROSTATIC DISORDER
  4. XATRAL [Concomitant]
     Indication: PROSTATIC DISORDER
  5. AERIUS [Concomitant]
     Indication: RASH
  6. AVLOCARDYL [Concomitant]
     Indication: HALLUCINATION
  7. AVLOCARDYL [Concomitant]
     Indication: IRRITABILITY
  8. AVLOCARDYL [Concomitant]
     Indication: ARRHYTHMIA
  9. AVLOCARDYL [Concomitant]
     Indication: PHLEBITIS
  10. AVLOCARDYL [Concomitant]
     Indication: MOOD SWINGS

REACTIONS (16)
  - Phlebitis [Recovered/Resolved]
  - Arrhythmia [Not Recovered/Not Resolved]
  - Hallucination [Recovered/Resolved]
  - Mood swings [Not Recovered/Not Resolved]
  - Irritability [Not Recovered/Not Resolved]
  - Rash [Recovered/Resolved]
  - Weight decreased [Not Recovered/Not Resolved]
  - Increased appetite [Not Recovered/Not Resolved]
  - Abdominal pain [Not Recovered/Not Resolved]
  - Gastrointestinal disorder [Not Recovered/Not Resolved]
  - Fatigue [Not Recovered/Not Resolved]
  - Insomnia [Not Recovered/Not Resolved]
  - Vision blurred [Not Recovered/Not Resolved]
  - Dry mouth [Not Recovered/Not Resolved]
  - Cough [Not Recovered/Not Resolved]
  - Wrong technique in drug usage process [Not Recovered/Not Resolved]
